FAERS Safety Report 4627240-0 (Version None)
Quarter: 2005Q1

REPORT INFORMATION
  Report Type: 
  Country: None (occurrence: None)
  Receive Date: 20050331
  Receipt Date: 20050316
  Transmission Date: 20050727
  Serious: Yes (Death)
  Sender: FDA-Public Use
  Company Number: 200416161BCC

PATIENT
  Age: 76 Year
  Sex: Female
  Weight: 86.1834 kg

DRUGS (6)
  1. ALEVE [Suspect]
     Dates: start: 20040901
  2. CORGARD [Concomitant]
  3. ATENOLOL [Concomitant]
  4. ISOSORBIDE [Concomitant]
  5. HYDROCHLOROTHIAZIDE [Concomitant]
  6. ASPIRIN [Concomitant]

REACTIONS (2)
  - CARDIO-RESPIRATORY ARREST [None]
  - MYOCARDIAL INFARCTION [None]
